FAERS Safety Report 11013140 (Version 2)
Quarter: 2015Q2

REPORT INFORMATION
  Report Type: Spontaneous
  Country: US (occurrence: US)
  Receive Date: 20150411
  Receipt Date: 20150525
  Transmission Date: 20150821
  Serious: No
  Sender: FDA-Public Use
  Company Number: US-JNJFOC-20121103870

PATIENT
  Sex: Female
  Weight: 74.39 kg

DRUGS (3)
  1. REMICADE [Suspect]
     Active Substance: INFLIXIMAB
     Indication: COLITIS ULCERATIVE
     Dosage: THE DOSE FOR THE DRUG WAS REPORTED AS ^10^, AND THE UNITS FOR DOSE WAS UNSPECIFIED.
     Route: 042
     Dates: start: 200609
  2. LISINOPRIL. [Concomitant]
     Active Substance: LISINOPRIL
     Indication: HYPERTENSION
     Route: 065
  3. REMICADE [Suspect]
     Active Substance: INFLIXIMAB
     Indication: COLITIS ULCERATIVE
     Route: 042
     Dates: start: 20121010

REACTIONS (5)
  - Abdominal pain upper [Unknown]
  - Poor quality drug administered [Unknown]
  - Hyperhidrosis [Unknown]
  - Anxiety [Unknown]
  - Drug ineffective [Not Recovered/Not Resolved]

NARRATIVE: CASE EVENT DATE: 2012
